FAERS Safety Report 6772538-3 (Version None)
Quarter: 2010Q2

REPORT INFORMATION
  Report Type: 
  Country: None (occurrence: None)
  Receive Date: 20100616
  Receipt Date: 20091130
  Transmission Date: 20101027
  Serious: No
  Sender: FDA-Public Use
  Company Number: US-ASTRAZENECA-2009SE29694

PATIENT
  Age: 74 Year
  Sex: Female
  Weight: 80.7 kg

DRUGS (9)
  1. PULMICORT [Suspect]
     Route: 055
     Dates: start: 20091001
  2. SYMBICORT [Suspect]
     Route: 055
     Dates: start: 20090101, end: 20091001
  3. HYZAAR [Concomitant]
     Indication: HYPERTENSION
  4. COZAAR [Concomitant]
     Indication: HYPERTENSION
  5. SINGULAIR [Concomitant]
  6. WELCHOL [Concomitant]
  7. COUMADIN [Concomitant]
  8. OMEPRAZOLE [Concomitant]
  9. LEVOTHYROXINE SODIUM [Concomitant]

REACTIONS (5)
  - ARTHRALGIA [None]
  - DEVICE MISUSE [None]
  - NASAL CONGESTION [None]
  - PYREXIA [None]
  - VISION BLURRED [None]
